FAERS Safety Report 12261100 (Version 1)
Quarter: 2016Q2

REPORT INFORMATION
  Report Type: Spontaneous
  Country: US (occurrence: None)
  Receive Date: 20160412
  Receipt Date: 20160412
  Transmission Date: 20160815
  Serious: Yes (Hospitalization)
  Sender: FDA-Public Use
  Company Number: None

PATIENT
  Age: 75 Year
  Sex: Male
  Weight: 65.3 kg

DRUGS (1)
  1. REGORAFINIB 40MG BAYER [Suspect]
     Active Substance: REGORAFENIB
     Indication: PRODUCT USED FOR UNKNOWN INDICATION
     Route: 048
     Dates: start: 20160315, end: 20160404

REACTIONS (2)
  - Chronic obstructive pulmonary disease [None]
  - Pyrexia [None]

NARRATIVE: CASE EVENT DATE: 20160408
